FAERS Safety Report 8489586-8 (Version None)
Quarter: 2012Q3

REPORT INFORMATION
  Report Type: 
  Country: None (occurrence: None)
  Receive Date: 20120705
  Receipt Date: 20120628
  Transmission Date: 20120928
  Serious: Yes (Hospitalization)
  Sender: FDA-Public Use
  Company Number: CA-TEVA-345301USA

PATIENT
  Sex: Male
  Weight: 77.8 kg

DRUGS (7)
  1. AMLODIPINE [Concomitant]
     Indication: HYPERTENSION
     Dosage: 2.5 MILLIGRAM;
     Route: 048
     Dates: start: 20120601
  2. BISOPROLOL FUMARATE [Concomitant]
  3. TREANDA [Suspect]
     Indication: CHRONIC LYMPHOCYTIC LEUKAEMIA
     Route: 042
     Dates: start: 20120426
  4. ROSUVASTATIN [Concomitant]
  5. SUCRALFATE [Concomitant]
  6. CALCIUM CARBONATE [Concomitant]
  7. ASPIRIN [Concomitant]

REACTIONS (2)
  - SYSTEMIC INFLAMMATORY RESPONSE SYNDROME [None]
  - RENAL FAILURE ACUTE [None]
